FAERS Safety Report 4949312-3 (Version None)
Quarter: 2006Q1

REPORT INFORMATION
  Report Type: 
  Country: None (occurrence: None)
  Receive Date: 20060321
  Receipt Date: 20060313
  Transmission Date: 20060701
  Serious: Yes (Other)
  Sender: FDA-Public Use
  Company Number: TR-BRISTOL-MYERS SQUIBB COMPANY-13320767

PATIENT
  Age: 53 Year
  Sex: Female

DRUGS (6)
  1. IFOSFAMIDE [Suspect]
     Indication: METASTASES TO PERITONEUM
  2. MESNA [Suspect]
     Indication: PROPHYLAXIS
  3. ETOPOSIDE [Suspect]
     Indication: METASTASES TO PERITONEUM
  4. GABAPENTIN [Concomitant]
     Indication: NEUROPATHY PERIPHERAL
  5. LORAZEPAM [Concomitant]
  6. TRAMADOL HCL [Concomitant]

REACTIONS (1)
  - STATUS EPILEPTICUS [None]
